FAERS Safety Report 6354688-9 (Version None)
Quarter: 2009Q3

REPORT INFORMATION
  Report Type: 
  Country: None (occurrence: None)
  Receive Date: 20090909
  Receipt Date: 20090827
  Transmission Date: 20100115
  Serious: Yes (Hospitalization)
  Sender: FDA-Public Use
  Company Number: 2009-195831-NL

PATIENT
  Age: 22 Year
  Sex: Female
  Weight: 54.4316 kg

DRUGS (3)
  1. NUVARING [Suspect]
     Indication: CONTRACEPTION
     Dosage: 1 DF;
     Dates: start: 20051001, end: 20060501
  2. ADVAIR HFA [Concomitant]
  3. PROVENTIL-HFA [Concomitant]

REACTIONS (2)
  - COLITIS [None]
  - DEEP VEIN THROMBOSIS [None]
